FAERS Safety Report 10237334 (Version 1)
Quarter: 2014Q2

REPORT INFORMATION
  Report Type: Spontaneous
  Country: GB (occurrence: GB)
  Receive Date: 20140613
  Receipt Date: 20140613
  Transmission Date: 20141212
  Serious: Yes (Other)
  Sender: FDA-Public Use
  Company Number: GB-RB-068565-14

PATIENT
  Sex: Female

DRUGS (1)
  1. BUPRENORPHINE [Suspect]
     Indication: PAIN
     Dosage: ONE DOSAGE FORM EVERY ONE WEEK; FURTHER DOSING DETAILS UNKNOWN
     Route: 062

REACTIONS (1)
  - Skin burning sensation [Recovered/Resolved]
